FAERS Safety Report 8159598-2 (Version None)
Quarter: 2012Q1

REPORT INFORMATION
  Report Type: 
  Country: None (occurrence: None)
  Receive Date: 20120216
  Receipt Date: 20120126
  Transmission Date: 20120608
  Serious: Yes (Hospitalization)
  Sender: FDA-Public Use
  Company Number: WAES 1201USA01790

PATIENT
  Age: 34 Year
  Sex: Female

DRUGS (3)
  1. TAB RALTEGRAVIR POTASSIUM [Suspect]
     Indication: HIV INFECTION
     Dosage: PO
     Route: 048
     Dates: start: 20101214
  2. SULFAMETHOXAZOLE AND TRIMETHOPRIM [Concomitant]
  3. LOPINAVIR/RITONAVIR [Suspect]
     Indication: PRODUCT USED FOR UNKNOWN INDICATION
     Dosage: PO
     Route: 048
     Dates: start: 20101214

REACTIONS (3)
  - DYSPNOEA [None]
  - PNEUMONIA [None]
  - CHEST PAIN [None]
